FAERS Safety Report 7700932-2 (Version None)
Quarter: 2011Q3

REPORT INFORMATION
  Report Type: 
  Country: None (occurrence: None)
  Receive Date: 20110822
  Receipt Date: 20110815
  Transmission Date: 20111222
  Serious: Yes (Other)
  Sender: FDA-Public Use
  Company Number: US-AMGEN-USASP2011041416

PATIENT
  Sex: Female

DRUGS (2)
  1. PROLIA [Suspect]
     Indication: OSTEOPOROSIS
     Dosage: UNK
     Dates: start: 20110301
  2. FORTEO [Concomitant]

REACTIONS (28)
  - BLISTER [None]
  - DRY EYE [None]
  - OEDEMA PERIPHERAL [None]
  - PRURITUS [None]
  - ARTERIAL DISORDER [None]
  - MUSCLE TWITCHING [None]
  - MUSCLE SPASMS [None]
  - TONGUE DISORDER [None]
  - MUSCLE TIGHTNESS [None]
  - SKIN WARM [None]
  - ASTHENIA [None]
  - PARAESTHESIA [None]
  - DEHYDRATION [None]
  - SKIN DISORDER [None]
  - BONE PAIN [None]
  - DEPRESSION [None]
  - HEART RATE IRREGULAR [None]
  - HYPOAESTHESIA [None]
  - DYSPNOEA [None]
  - NECK PAIN [None]
  - DRY SKIN [None]
  - SWELLING [None]
  - ACTIVITIES OF DAILY LIVING IMPAIRED [None]
  - IMPAIRED HEALING [None]
  - BACK PAIN [None]
  - PAIN IN EXTREMITY [None]
  - FATIGUE [None]
  - TRISMUS [None]
